FAERS Safety Report 24621463 (Version 1)
Quarter: 2024Q4

REPORT INFORMATION
  Report Type: Spontaneous
  Country: BR (occurrence: BR)
  Receive Date: 20241114
  Receipt Date: 20241114
  Transmission Date: 20250114
  Serious: Yes (Other)
  Sender: ELI LILLY AND COMPANY
  Company Number: BR-ELI_LILLY_AND_COMPANY-BR202411002425

PATIENT
  Age: 56 Year
  Sex: Female

DRUGS (4)
  1. ABEMACICLIB [Suspect]
     Active Substance: ABEMACICLIB
     Indication: Breast cancer
     Dosage: UNK UNK, UNKNOWN
     Route: 065
     Dates: start: 202202, end: 20240429
  2. XGEVA [Suspect]
     Active Substance: DENOSUMAB
     Indication: Product used for unknown indication
     Dosage: UNK UNK, UNKNOWN
     Route: 065
     Dates: start: 202202, end: 202308
  3. FEMARA [Concomitant]
     Active Substance: LETROZOLE
     Indication: Product used for unknown indication
     Dosage: UNK UNK, UNKNOWN
     Route: 065
     Dates: start: 202202
  4. GOSERELIN [Concomitant]
     Active Substance: GOSERELIN
     Indication: Product used for unknown indication
     Dosage: UNK UNK, UNKNOWN
     Route: 065
     Dates: start: 202202

REACTIONS (7)
  - Osteonecrosis [Unknown]
  - Malignant neoplasm progression [Unknown]
  - Tooth disorder [Unknown]
  - Blood creatinine abnormal [Unknown]
  - Therapeutic response decreased [Unknown]
  - Fatigue [Unknown]
  - Diarrhoea [Unknown]
